FAERS Safety Report 25135243 (Version 1)
Quarter: 2025Q1

REPORT INFORMATION
  Report Type: Spontaneous
  Country: SK (occurrence: SK)
  Receive Date: 20250328
  Receipt Date: 20250328
  Transmission Date: 20250408
  Serious: Yes (Hospitalization, Other)
  Sender: ADC THERAPEUTICS
  Company Number: SK-BIOVITRUM-2025-SK-003813

PATIENT
  Sex: Male

DRUGS (3)
  1. ZYNLONTA [Suspect]
     Active Substance: LONCASTUXIMAB TESIRINE-LPYL
     Indication: Product used for unknown indication
     Dates: start: 20240423, end: 20240423
  2. ZYNLONTA [Suspect]
     Active Substance: LONCASTUXIMAB TESIRINE-LPYL
  3. ZYNLONTA [Suspect]
     Active Substance: LONCASTUXIMAB TESIRINE-LPYL
     Dates: start: 20240618, end: 20240618

REACTIONS (5)
  - Infection [Recovered/Resolved]
  - Thrombocytopenia [Unknown]
  - Skin toxicity [Unknown]
  - Swelling face [Unknown]
  - Rash pruritic [Unknown]
